FAERS Safety Report 7978574-3 (Version None)
Quarter: 2011Q4

REPORT INFORMATION
  Report Type: 
  Country: None (occurrence: None)
  Receive Date: 20111214
  Receipt Date: 20111208
  Transmission Date: 20120403
  Serious: Yes (Hospitalization)
  Sender: FDA-Public Use
  Company Number: US-ROXANE LABORATORIES, INC.-2011-RO-01767RO

PATIENT
  Age: 59 Year
  Sex: Female
  Weight: 100 kg

DRUGS (3)
  1. HYDROMORPHONE HCL [Suspect]
     Route: 030
  2. MEPERIDINE HYDROCHLORIDE [Suspect]
     Route: 042
  3. PROMETHAZINE [Suspect]
     Route: 042

REACTIONS (9)
  - HYPERCAPNIA [None]
  - SINUS TACHYCARDIA [None]
  - HYPOXIA [None]
  - PICKWICKIAN SYNDROME [None]
  - ATELECTASIS [None]
  - RESPIRATORY ACIDOSIS [None]
  - METABOLIC ALKALOSIS [None]
  - SOMNOLENCE [None]
  - BUNDLE BRANCH BLOCK RIGHT [None]
